FAERS Safety Report 6419407-6 (Version None)
Quarter: 2009Q4

REPORT INFORMATION
  Report Type: 
  Country: None (occurrence: None)
  Receive Date: 20091029
  Receipt Date: 20091026
  Transmission Date: 20100525
  Serious: Yes (Death)
  Sender: FDA-Public Use
  Company Number: BE-CELGENEUS-013-21880-09100241

PATIENT
  Sex: Male
  Weight: 65 kg

DRUGS (3)
  1. REVLIMID [Suspect]
     Indication: PLASMACYTOMA
     Route: 048
     Dates: start: 20090504, end: 20090525
  2. ADRIAMYCIN PFS [Concomitant]
     Indication: PLASMACYTOMA
  3. DEXAMETHASONE [Concomitant]
     Indication: PLASMACYTOMA

REACTIONS (1)
  - MULTIPLE MYELOMA [None]
